FAERS Safety Report 10889464 (Version 3)
Quarter: 2015Q1

REPORT INFORMATION
  Report Type: Spontaneous
  Country: US (occurrence: US)
  Receive Date: 20150305
  Receipt Date: 20150320
  Transmission Date: 20150721
  Serious: Yes (Hospitalization)
  Sender: FDA-Public Use
  Company Number: US-ACTELION-A-NJ2015-113751

PATIENT
  Age: 50 Year
  Sex: Female

DRUGS (5)
  1. REVATIO [Concomitant]
     Active Substance: SILDENAFIL CITRATE
     Dosage: 10 UNK, TID
  2. VELETRI [Suspect]
     Active Substance: EPOPROSTENOL
     Indication: PULMONARY HYPERTENSION
     Dosage: 12 NG/KG, PER MIN
     Route: 042
     Dates: start: 201412
  3. VELETRI [Suspect]
     Active Substance: EPOPROSTENOL
     Dosage: 7.5 NG/KG, UNK
     Route: 042
     Dates: start: 20140521
  4. OPSUMIT [Suspect]
     Active Substance: MACITENTAN
     Indication: PULMONARY HYPERTENSION
     Dosage: 10 MG, UNK
     Route: 048
     Dates: start: 20140129
  5. LASIX [Concomitant]
     Active Substance: FUROSEMIDE
     Dosage: 20 MG, UNK

REACTIONS (6)
  - Catheter site pain [Recovered/Resolved]
  - Catheter site infection [Unknown]
  - Blood culture positive [Recovered/Resolved]
  - Bacterial infection [Recovered/Resolved]
  - Sepsis [Unknown]
  - Device related infection [Recovered/Resolved]

NARRATIVE: CASE EVENT DATE: 20150220
